FAERS Safety Report 4386488-3 (Version None)
Quarter: 2004Q2

REPORT INFORMATION
  Report Type: 
  Country: None (occurrence: None)
  Receive Date: 20040623
  Receipt Date: 20040608
  Transmission Date: 20050107
  Serious: Yes (Hospitalization)
  Sender: FDA-Public Use
  Company Number: 700129

PATIENT
  Age: 63 Year
  Sex: Male
  Weight: 61 kg

DRUGS (13)
  1. EXTRANEAL [Suspect]
     Indication: PERITONEAL DIALYSIS
     Dosage: 2 L; QD; INTRAPERITONEAL
     Route: 033
     Dates: start: 20030714, end: 20031216
  2. DIANEAL PD4 1.5% [Concomitant]
  3. DIANEAL [Concomitant]
  4. AMLODIPINE BESYLATE [Concomitant]
  5. CANDESARTAN CILEXETIL [Concomitant]
  6. FUROSEMIDE [Concomitant]
  7. LAFUTIDINE [Concomitant]
  8. FERROUS CITRATE [Concomitant]
  9. ALFACALCIDOL [Concomitant]
  10. MENATETRENONE [Concomitant]
  11. ALENDRONATE SODIUM [Concomitant]
  12. DOXAZOSIN MESYLATE [Concomitant]
  13. EPOETIN ALFA (GENETICAL RECOMBINATION) [Concomitant]

REACTIONS (7)
  - COUGH [None]
  - DIAPHRAGMATIC RUPTURE [None]
  - DYSPNOEA [None]
  - FLUID IMBALANCE [None]
  - HAEMODIALYSIS [None]
  - PLEURAL EFFUSION [None]
  - WEIGHT INCREASED [None]
